FAERS Safety Report 16913303 (Version 1)
Quarter: 2019Q4

REPORT INFORMATION
  Report Type: Spontaneous
  Country: ES (occurrence: ES)
  Receive Date: 20191014
  Receipt Date: 20191014
  Transmission Date: 20200122
  Serious: Yes (Other)
  Sender: FDA-Public Use
  Company Number: ES-TEVA-2019-ES-1118905

PATIENT
  Age: 59 Year
  Sex: Male
  Weight: 120 kg

DRUGS (1)
  1. AMOXICILLIN / CLAVULANIC ACID TEVAGEN 875 MG / 125 MG TABLETS COVERED [Suspect]
     Active Substance: AMOXICILLIN\CLAVULANIC ACID
     Indication: PNEUMONIA
     Dosage: 875 MG / 125 MG EVERY EIGHT HOURS
     Dates: start: 20190911

REACTIONS (2)
  - Abdominal pain upper [Not Recovered/Not Resolved]
  - Vomiting [Not Recovered/Not Resolved]

NARRATIVE: CASE EVENT DATE: 20190913
